FAERS Safety Report 20768590 (Version 1)
Quarter: 2022Q2

REPORT INFORMATION
  Report Type: Spontaneous
  Country: US (occurrence: US)
  Receive Date: 20220429
  Receipt Date: 20220429
  Transmission Date: 20220721
  Serious: Yes (Other)
  Sender: FDA-Public Use
  Company Number: US-SA-SAC20220428000309

PATIENT
  Age: 73 Year
  Sex: Male

DRUGS (1)
  1. ZANTAC [Suspect]
     Active Substance: RANITIDINE HYDROCHLORIDE
     Indication: Gastrooesophageal reflux disease
     Dosage: FREQUENCY:OTHER
     Route: 065
     Dates: start: 200406, end: 202012

REACTIONS (1)
  - Lung carcinoma cell type unspecified stage III [Recovered/Resolved]

NARRATIVE: CASE EVENT DATE: 20161215
